FAERS Safety Report 15014252 (Version 2)
Quarter: 2019Q2

REPORT INFORMATION
  Report Type: Spontaneous
  Country: US (occurrence: US)
  Receive Date: 20180615
  Receipt Date: 20190624
  Transmission Date: 20190711
  Serious: No
  Sender: FDA-Public Use
  Company Number: US-JNJFOC-20180602087

PATIENT
  Sex: Male

DRUGS (2)
  1. ZYTIGA [Suspect]
     Active Substance: ABIRATERONE ACETATE
     Indication: PRODUCT USED FOR UNKNOWN INDICATION
     Dosage: 500 MG TAKE 2 TABLETS DAILY
     Route: 048
     Dates: end: 20180522
  2. ZYTIGA [Suspect]
     Active Substance: ABIRATERONE ACETATE
     Dosage: 3 (250MG) TABLETS
     Route: 048

REACTIONS (3)
  - Liver function test increased [Unknown]
  - Incorrect dose administered [Unknown]
  - Off label use [Unknown]
